FAERS Safety Report 12173441 (Version 3)
Quarter: 2016Q1

REPORT INFORMATION
  Report Type: Spontaneous
  Country: US (occurrence: US)
  Receive Date: 20160311
  Receipt Date: 20160317
  Transmission Date: 20160526
  Serious: No
  Sender: FDA-Public Use
  Company Number: US-GALDERMA-US15007694

PATIENT
  Age: 69 Year
  Sex: Female

DRUGS (8)
  1. TRI-LUMA [Suspect]
     Active Substance: FLUOCINOLONE ACETONIDE\HYDROQUINONE\TRETINOIN
     Indication: SOLAR LENTIGO
     Route: 061
     Dates: start: 20150923, end: 20151006
  2. SUNSCREEN [Concomitant]
     Active Substance: HOMOSALATE\OCTINOXATE\OCTISALATE\OXYBENZONE\TITANIUM DIOXIDE
     Route: 061
  3. POND^S FACE WIPES [Concomitant]
     Route: 061
  4. ATORVASTATIN [Concomitant]
     Active Substance: ATORVASTATIN
     Indication: BLOOD CHOLESTEROL
  5. FISH OIL [Concomitant]
     Active Substance: FISH OIL
  6. NEUTROGENA HYDRO BOOST [Concomitant]
     Route: 061
  7. CALTRATE 600 D3 [Concomitant]
  8. CENTRUM [Concomitant]
     Active Substance: VITAMINS

REACTIONS (4)
  - Pruritus [Recovered/Resolved]
  - Scab [Recovered/Resolved]
  - Urticaria [Recovered/Resolved]
  - Product use issue [Recovered/Resolved]

NARRATIVE: CASE EVENT DATE: 20150924
